FAERS Safety Report 10065278 (Version 1)
Quarter: 2014Q2

REPORT INFORMATION
  Report Type: Spontaneous
  Country: US (occurrence: None)
  Receive Date: 20140404
  Receipt Date: 20140404
  Transmission Date: 20141212
  Serious: Yes (Disabling, Other)
  Sender: FDA-Public Use
  Company Number: 2014-19277

PATIENT
  Sex: Female
  Weight: 52 kg

DRUGS (3)
  1. EYLEA (AFLIBERCEPT) INJECTION)AFLIBERCEPT) [Suspect]
     Indication: MACULAR DEGENERATION
     Route: 031
     Dates: start: 201210
  2. ALL OTHER THERAPEUTIC PRODUCT (THYROID MEDICATION) [Concomitant]
  3. ALL OTHER THERAPEUTIC PRODUCT (HIGH BLOOD PRESSURE MEDICATION) [Concomitant]

REACTIONS (2)
  - Blindness unilateral [None]
  - Maculopathy [None]
